FAERS Safety Report 13568791 (Version 1)
Quarter: 2017Q2

REPORT INFORMATION
  Report Type: Spontaneous
  Country: US (occurrence: US)
  Receive Date: 20170522
  Receipt Date: 20170522
  Transmission Date: 20170830
  Serious: No
  Sender: FDA-Public Use
  Company Number: US-JUBILANT CADISTA PHARMACEUTICALS-2017JUB00079

PATIENT
  Sex: Female

DRUGS (1)
  1. SPIRONOLACTONE. [Suspect]
     Active Substance: SPIRONOLACTONE
     Indication: ACNE
     Dosage: UNK

REACTIONS (2)
  - Off label use [Not Recovered/Not Resolved]
  - Abdominal discomfort [Not Recovered/Not Resolved]
